FAERS Safety Report 25256344 (Version 2)
Quarter: 2025Q3

REPORT INFORMATION
  Report Type: Spontaneous
  Country: JP (occurrence: JP)
  Receive Date: 20250430
  Receipt Date: 20250912
  Transmission Date: 20251021
  Serious: Yes (Other)
  Sender: FERRING
  Company Number: JP-ferring-EVA202500576FERRINGPH

PATIENT

DRUGS (1)
  1. NOCDURNA [Suspect]
     Active Substance: DESMOPRESSIN ACETATE
     Indication: Nocturia
     Route: 048

REACTIONS (2)
  - Pleural effusion [Unknown]
  - Therapeutic product effect incomplete [Unknown]
